FAERS Safety Report 6847348-9 (Version None)
Quarter: 2010Q3

REPORT INFORMATION
  Report Type: 
  Country: None (occurrence: None)
  Receive Date: 20100716
  Receipt Date: 20100705
  Transmission Date: 20110219
  Serious: Yes (Hospitalization)
  Sender: FDA-Public Use
  Company Number: BY-BAYER-201031562GPV

PATIENT
  Age: 40 Year
  Sex: Female

DRUGS (1)
  1. MIRENA [Suspect]
     Indication: ADENOMYOSIS
     Route: 015
     Dates: start: 20091012, end: 20100426

REACTIONS (7)
  - BREAST TENDERNESS [None]
  - HEADACHE [None]
  - HEPATIC ENZYME INCREASED [None]
  - HEPATITIS C VIRUS TEST POSITIVE [None]
  - LIBIDO DECREASED [None]
  - PROGESTERONE INCREASED [None]
  - WEIGHT INCREASED [None]
